FAERS Safety Report 23139195 (Version 2)
Quarter: 2023Q4

REPORT INFORMATION
  Report Type: Spontaneous
  Country: JP (occurrence: JP)
  Receive Date: 20231102
  Receipt Date: 20231207
  Transmission Date: 20240109
  Serious: Yes (Death, Life-Threatening, Hospitalization, Other)
  Sender: FDA-Public Use
  Company Number: JP-ELI_LILLY_AND_COMPANY-JP202310017664

PATIENT
  Age: 72 Year
  Sex: Male
  Weight: 59 kg

DRUGS (17)
  1. CYRAMZA [Suspect]
     Active Substance: RAMUCIRUMAB
     Indication: Gastric cancer
     Dosage: 480 MG, UNKNOWN
     Route: 041
     Dates: start: 20230718, end: 20230718
  2. CYRAMZA [Suspect]
     Active Substance: RAMUCIRUMAB
     Dosage: 440 MG, UNKNOWN
     Route: 041
     Dates: start: 20230808, end: 20230808
  3. ABRAXANE [Concomitant]
     Active Substance: PACLITAXEL
     Indication: Gastric cancer
     Dosage: 165 MG
  4. ANAMORELIN HYDROCHLORIDE [Concomitant]
     Active Substance: ANAMORELIN HYDROCHLORIDE
  5. FEXOFENADINE HYDROCHLORIDE [Concomitant]
     Active Substance: FEXOFENADINE HYDROCHLORIDE
  6. SODIUM GUALENATE MONOHYDRATE [Concomitant]
     Active Substance: SODIUM GUALENATE MONOHYDRATE
  7. ACETAMINOPHEN [Concomitant]
     Active Substance: ACETAMINOPHEN
  8. FEBUXOSTAT [Concomitant]
     Active Substance: FEBUXOSTAT
  9. COLCHICINE [Concomitant]
     Active Substance: COLCHICINE
  10. DEXAMETHASONE SODIUM PHOSPHATE [Concomitant]
     Active Substance: DEXAMETHASONE PHOSPHATE\DEXAMETHASONE SODIUM PHOSPHATE
  11. CHLORPHENIRAMINE MALEATE [Concomitant]
     Active Substance: CHLORPHENIRAMINE MALEATE
  12. MORPHINE HYDROCHLORIDE [Concomitant]
     Active Substance: MORPHINE HYDROCHLORIDE
     Indication: Analgesic therapy
     Dosage: UNK
     Route: 065
     Dates: start: 20230825, end: 20230905
  13. PREDNISOLONE [Concomitant]
     Active Substance: PREDNISOLONE
     Dosage: 50 MG, UNKNOWN
     Route: 065
     Dates: start: 20230827, end: 20230830
  14. PREDNISOLONE [Concomitant]
     Active Substance: PREDNISOLONE
     Dosage: 40 MG, UNKNOWN
     Route: 065
     Dates: start: 20230901, end: 20230904
  15. PREDNISOLONE [Concomitant]
     Active Substance: PREDNISOLONE
     Dosage: 30 MG, UNKNOWN
     Route: 065
     Dates: start: 20230905, end: 20230906
  16. PREDNISOLONE [Concomitant]
     Active Substance: PREDNISOLONE
     Dosage: 20 MG, UNKNOWN
     Route: 065
     Dates: start: 20230907, end: 20230907
  17. PREDNISOLONE [Concomitant]
     Active Substance: PREDNISOLONE
     Dosage: 10 MG, UNKNOWN
     Route: 065
     Dates: start: 20230908

REACTIONS (5)
  - Interstitial lung disease [Recovered/Resolved]
  - Malignant neoplasm progression [Fatal]
  - Liver disorder [Unknown]
  - Anaemia [Unknown]
  - Blood beta-D-glucan positive [Unknown]

NARRATIVE: CASE EVENT DATE: 20230722
